FAERS Safety Report 12947145 (Version 3)
Quarter: 2016Q4

REPORT INFORMATION
  Report Type: Spontaneous
  Country: BE (occurrence: BE)
  Receive Date: 20161116
  Receipt Date: 20161122
  Transmission Date: 20170207
  Serious: Yes (Hospitalization)
  Sender: FDA-Public Use
  Company Number: BE-BAYER-2016-212706

PATIENT
  Age: 59 Year
  Sex: Female

DRUGS (5)
  1. PANTOPRAZOLE [Concomitant]
     Active Substance: PANTOPRAZOLE SODIUM
     Dosage: 20 MG, UNK
  2. KLIOGEST [Concomitant]
     Active Substance: ESTROGENS
  3. CALCIUM [Concomitant]
     Active Substance: CALCIUM
  4. L THYROXINE [Concomitant]
     Active Substance: LEVOTHYROXINE SODIUM
  5. NEXAVAR [Suspect]
     Active Substance: SORAFENIB
     Indication: THYROID CANCER
     Dosage: 400 MG, QD
     Dates: start: 20161010, end: 2016

REACTIONS (4)
  - Blister [Recovering/Resolving]
  - Swelling face [None]
  - Palmar-plantar erythrodysaesthesia syndrome [Recovering/Resolving]
  - Rash [Recovering/Resolving]

NARRATIVE: CASE EVENT DATE: 20161030
